FAERS Safety Report 11328664 (Version 2)
Quarter: 2015Q4

REPORT INFORMATION
  Report Type: Report from Study
  Country: BR (occurrence: BR)
  Receive Date: 20150731
  Receipt Date: 20151130
  Transmission Date: 20160304
  Serious: Yes (Other)
  Sender: FDA-Public Use
  Company Number: PHHY2015BR089609

PATIENT
  Age: 76 Year
  Sex: Female
  Weight: 57 kg

DRUGS (4)
  1. ACLASTA [Suspect]
     Active Substance: ZOLEDRONIC ACID
     Indication: OSTEOPOROSIS
     Dosage: 5 MG, Q12MO
     Route: 042
     Dates: start: 201411
  2. ACLASTA [Suspect]
     Active Substance: ZOLEDRONIC ACID
     Dosage: 5 MG, Q12MO
     Route: 042
     Dates: start: 201510
  3. BIO D MULSION [Concomitant]
     Indication: VITAMIN D DEFICIENCY
     Dosage: 10 DRP, QD
     Route: 048
  4. OSCAR [Concomitant]
     Indication: OSTEOPOROSIS
     Dosage: UNK, QD
     Route: 048

REACTIONS (3)
  - Joint injury [Not Recovered/Not Resolved]
  - Bone fissure [Not Recovered/Not Resolved]
  - Fall [Unknown]

NARRATIVE: CASE EVENT DATE: 20150601
